FAERS Safety Report 7562743-0 (Version None)
Quarter: 2011Q2

REPORT INFORMATION
  Report Type: 
  Country: None (occurrence: None)
  Receive Date: 20110615
  Receipt Date: 20110609
  Transmission Date: 20111010
  Serious: Yes (Hospitalization, Other)
  Sender: FDA-Public Use
  Company Number: WAES 0911USA03410

PATIENT
  Age: 68 Year
  Sex: Male

DRUGS (10)
  1. LANSOPRAZOLE [Concomitant]
  2. BISOPROLOL FUMARATE [Concomitant]
  3. CAP VORINOSTAT [Suspect]
     Indication: MULTIPLE MYELOMA
     Dosage: 400 MG/DAILY PO
     Route: 048
     Dates: start: 20091020, end: 20091023
  4. CAP VORINOSTAT [Suspect]
     Indication: MULTIPLE MYELOMA
     Dosage: 400 MG/DAILY PO
     Route: 048
     Dates: start: 20091113, end: 20091116
  5. CAP VORINOSTAT [Suspect]
     Indication: MULTIPLE MYELOMA
     Dosage: 400 MG/DAILY PO
     Route: 048
     Dates: start: 20091118, end: 20091120
  6. BORTEZOMIB [Suspect]
     Indication: MULTIPLE MYELOMA
     Dosage: 2.2 MG/ IV, 1.3 MG/ IV
     Route: 042
     Dates: start: 20091113, end: 20091116
  7. BORTEZOMIB [Suspect]
     Indication: MULTIPLE MYELOMA
     Dosage: 2.2 MG/ IV, 1.3 MG/ IV
     Route: 042
     Dates: start: 20091120, end: 20091120
  8. BORTEZOMIB [Suspect]
     Indication: MULTIPLE MYELOMA
     Dosage: 2.2 MG/ IV, 1.3 MG/ IV
     Route: 042
     Dates: start: 20091020, end: 20091023
  9. ACYCLOVIR [Concomitant]
  10. AMOXICILLIN AND CLAVULANATE POTASSIUM [Concomitant]

REACTIONS (13)
  - MULTIPLE MYELOMA [None]
  - PALPITATIONS [None]
  - BLOOD PRESSURE INCREASED [None]
  - INTERNATIONAL NORMALISED RATIO INCREASED [None]
  - PNEUMOCYSTIS JIROVECI PNEUMONIA [None]
  - DIARRHOEA [None]
  - NEOPLASM PROGRESSION [None]
  - TACHYCARDIA [None]
  - FEBRILE NEUTROPENIA [None]
  - PROTHROMBIN TIME PROLONGED [None]
  - THROMBOCYTOPENIA [None]
  - LOWER RESPIRATORY TRACT INFECTION [None]
  - HYPOTENSION [None]
